FAERS Safety Report 11724345 (Version 2)
Quarter: 2015Q4

REPORT INFORMATION
  Report Type: Spontaneous
  Country: JP (occurrence: JP)
  Receive Date: 20151111
  Receipt Date: 20151221
  Transmission Date: 20160304
  Serious: Yes (Life-Threatening)
  Sender: FDA-Public Use
  Company Number: JP-ELI_LILLY_AND_COMPANY-JP201511001692

PATIENT
  Age: 41 Year
  Sex: Female
  Weight: 59.3 kg

DRUGS (10)
  1. HUMULIN N [Suspect]
     Active Substance: INSULIN HUMAN
     Dosage: 22 IU IN THE MORNING, 4 IU IN THE EVENING
     Route: 058
     Dates: start: 20120406, end: 20120802
  2. HUMULIN N [Suspect]
     Active Substance: INSULIN HUMAN
     Dosage: 14 IU IN THE MORNING, 3 IU IN THE EVENING
     Route: 058
     Dates: start: 20131130, end: 20140820
  3. METHYCOBAL [Concomitant]
     Active Substance: METHYLCOBALAMIN
     Dosage: 1 DF, BID
     Route: 048
  4. HUMULIN N [Suspect]
     Active Substance: INSULIN HUMAN
     Dosage: 18 IU IN THE MORNING, 3 IU IN THE EVENING
     Route: 058
     Dates: start: 20120803, end: 20131129
  5. HUMULIN N [Suspect]
     Active Substance: INSULIN HUMAN
     Indication: TYPE 1 DIABETES MELLITUS
     Dosage: 25 IU IN THE MORNING, 6 IU IN THE EVENING
     Route: 058
     Dates: start: 20081213, end: 20120405
  6. HUMALOG [Suspect]
     Active Substance: INSULIN LISPRO
     Indication: TYPE 1 DIABETES MELLITUS
     Dosage: 6 IU IN THE MORNING, 4 IU IN THE EVENING
     Route: 058
     Dates: start: 20081213, end: 20110318
  7. ALESION [Concomitant]
     Active Substance: EPINASTINE HYDROCHLORIDE
     Dosage: 1 DF, QD
     Route: 048
  8. HUMALOG [Suspect]
     Active Substance: INSULIN LISPRO
     Dosage: 5 IU IN THE MORNING, 4 IU IN THE EVENING
     Route: 058
     Dates: start: 20110319, end: 20120405
  9. HUMALOG [Suspect]
     Active Substance: INSULIN LISPRO
     Dosage: 4 IU IN THE MORNING, 4 IU IN THE EVENING
     Route: 058
     Dates: start: 20120406
  10. HUMULIN N [Suspect]
     Active Substance: INSULIN HUMAN
     Dosage: 12 IU IN THE MORNING, 3 IU IN THE EVENING
     Route: 058
     Dates: start: 20140821

REACTIONS (1)
  - Hypoglycaemic coma [Recovered/Resolved]

NARRATIVE: CASE EVENT DATE: 20151029
